FAERS Safety Report 15291902 (Version 1)
Quarter: 2018Q3

REPORT INFORMATION
  Report Type: Spontaneous
  Country: US (occurrence: US)
  Receive Date: 20180817
  Receipt Date: 20180817
  Transmission Date: 20181010
  Serious: No
  Sender: FDA-Public Use
  Company Number: US-TAKEDA-2018TUS024692

PATIENT
  Sex: Female

DRUGS (4)
  1. DEXILANT [Suspect]
     Active Substance: DEXLANSOPRAZOLE
     Indication: GASTROOESOPHAGEAL REFLUX DISEASE
     Dosage: 60 MG, QD
     Route: 048
  2. DEXILANT [Suspect]
     Active Substance: DEXLANSOPRAZOLE
     Dosage: 60 MG, QD
     Route: 048
  3. DEXILANT [Suspect]
     Active Substance: DEXLANSOPRAZOLE
     Dosage: 60 MG, UNK
     Route: 048
  4. DEXILANT [Suspect]
     Active Substance: DEXLANSOPRAZOLE
     Dosage: 30 MG, UNK
     Route: 048

REACTIONS (6)
  - Incorrect drug administration duration [Unknown]
  - Drug withdrawal syndrome [Unknown]
  - Dysgeusia [Recovered/Resolved]
  - Cough [Recovered/Resolved]
  - Wrong technique in product usage process [Unknown]
  - Irritability [Recovered/Resolved]
